FAERS Safety Report 12290743 (Version 3)
Quarter: 2017Q1

REPORT INFORMATION
  Report Type: Spontaneous
  Country: US (occurrence: US)
  Receive Date: 20160421
  Receipt Date: 20170303
  Transmission Date: 20170428
  Serious: No
  Sender: FDA-Public Use
  Company Number: US-PFIZER INC-2016197158

PATIENT
  Age: 66 Year
  Sex: Female

DRUGS (37)
  1. REVATIO [Suspect]
     Active Substance: SILDENAFIL CITRATE
     Indication: LUNG DISORDER
     Dosage: 20 MG, 3X/DAY
     Route: 048
     Dates: start: 2008
  2. NITRO-DUR [Concomitant]
     Active Substance: NITROGLYCERIN
     Dosage: UNK UNK, DAILY (0.2 MG/HR: APPLY 1 PATCH AS DIRECTED ONCE DAILY)
  3. SYMBICORT [Concomitant]
     Active Substance: BUDESONIDE\FORMOTEROL FUMARATE DIHYDRATE
     Dosage: UNK UNK, 2X/DAY (BUDESONIDE: 80 MCG/ACTUATION, FORMOTEROL FUMARATE: 4.5 MCG/ACTUATION: INHALE 2 PUFF
     Route: 055
  4. CRANBERRY. [Concomitant]
     Active Substance: CRANBERRY
     Dosage: 250 MG, 1X/DAY
     Route: 048
  5. ZOFRAN [Concomitant]
     Active Substance: ONDANSETRON HYDROCHLORIDE
     Dosage: 4 MG, AS NEEDED (TAKE 4 MG BY MOUTH EVERY 8 HOURS AS NEEDED)
     Route: 048
  6. TYLENOL EXTRA STRENGTH [Concomitant]
     Active Substance: ACETAMINOPHEN
     Dosage: 1000 MG, 1X/DAY
     Route: 048
  7. PREDNISONE. [Concomitant]
     Active Substance: PREDNISONE
     Dosage: 5 MG, 1X/DAY
     Route: 048
  8. MORPHINE SULFATE. [Concomitant]
     Active Substance: MORPHINE SULFATE
     Dosage: 30 MG, 2X/DAY (TAKE 30 MG AM AND PM)
     Route: 048
  9. CELLCEPT [Concomitant]
     Active Substance: MYCOPHENOLATE MOFETIL\MYCOPHENOLATE MOFETIL HYDROCHLORIDE
     Dosage: 1000 MG, 2X/DAY (500 MG, 2 TABLETS TWICE DAILY)
     Route: 048
  10. HYDROCODONE-ACETAMINOPHEN [Concomitant]
     Active Substance: ACETAMINOPHEN\HYDROCODONE
     Dosage: UNK, AS NEEDED (HYDROCODONE: 5MG-ACETAMINOPHEN:325 MG, TAKE 1 TABLET BY MOUTH EVERY 6 HOURS)
     Route: 048
  11. PLAQUENIL [Concomitant]
     Active Substance: HYDROXYCHLOROQUINE SULFATE
     Dosage: 200 MG, 2X/DAY
     Route: 048
  12. VI-CERT C [Concomitant]
     Dosage: UNK, MONTHLY
     Route: 051
  13. LOSARTAN. [Concomitant]
     Active Substance: LOSARTAN
     Dosage: 50 MG, DAILY (BED TIME)
     Route: 048
  14. RECLAST [Concomitant]
     Active Substance: ZOLEDRONIC ACID
     Dosage: UNK
     Route: 042
  15. TRIAMCINOLONE ACETONIDE. [Concomitant]
     Active Substance: TRIAMCINOLONE ACETONIDE
     Dosage: UNK (0.1% OINTMENT)
     Route: 061
  16. CELLCEPT [Concomitant]
     Active Substance: MYCOPHENOLATE MOFETIL\MYCOPHENOLATE MOFETIL HYDROCHLORIDE
     Dosage: 1500 MG, UNK (500 MG, 2 TABLETS BY MOUTH IN THE MORNING, AND 1 TABLET IN THE EVENING)
     Route: 048
  17. COLCHICINE. [Concomitant]
     Active Substance: COLCHICINE
     Dosage: 0.6 MG, DAILY (TAKE ONE TABLE ON M, W, AND F)
     Route: 048
  18. KCL [Concomitant]
     Active Substance: POTASSIUM CHLORIDE
     Dosage: 1 DF, DAILY
     Route: 048
  19. CALCIUM + D [Concomitant]
     Active Substance: CALCIUM\VITAMIN D
     Dosage: 600 MG, 2X/DAY
     Route: 048
  20. LINZESS [Concomitant]
     Active Substance: LINACLOTIDE
     Dosage: 145 UG, 1X/DAY
     Route: 048
  21. BIAFINE [Concomitant]
     Active Substance: TROLAMINE
     Dosage: UNK UNK, AS NEEDED
  22. PRILOSEC [Concomitant]
     Active Substance: OMEPRAZOLE MAGNESIUM
     Dosage: 40 MG, 1X/DAY
     Route: 048
  23. SAVELLA [Concomitant]
     Active Substance: MILNACIPRAN HYDROCHLORIDE
     Dosage: 6.25 MG, 1X/DAY
     Route: 048
  24. GABAPENTIN. [Concomitant]
     Active Substance: GABAPENTIN
     Dosage: 1200 MG, DAILY (AT BEDTIME)
     Route: 048
  25. LASIX [Concomitant]
     Active Substance: FUROSEMIDE
     Dosage: 80 MG, DAILY
     Route: 048
  26. CENTRUM SILVER [Concomitant]
     Active Substance: MINERALS\VITAMINS
     Dosage: 1 DF, DAILY
     Route: 048
  27. VITAMIN B12 [Concomitant]
     Active Substance: CYANOCOBALAMIN
     Dosage: UNK, MONTHLY
  28. GENTAMICIN. [Concomitant]
     Active Substance: GENTAMICIN
     Dosage: UNK UNK, 1X/DAY (0.1 % )
  29. ASPIRIN. [Concomitant]
     Active Substance: ASPIRIN
     Dosage: 81 MG, 1X/DAY
     Route: 048
  30. VITAMIN C [Concomitant]
     Active Substance: ASCORBIC ACID
     Dosage: 1000 MG, 1X/DAY
     Route: 048
  31. BIOTIN [Concomitant]
     Active Substance: BIOTIN
     Dosage: 10 MG, DAILY
     Route: 048
  32. HYDROCORTISONE. [Concomitant]
     Active Substance: HYDROCORTISONE
     Dosage: UNK UNK, AS NEEDED (2.5 % CREAM: APPLY TO AFFECTED AREA ONCE DAILY. ON HER NECK)
  33. VITAMIN B COMPLEX [Concomitant]
     Active Substance: CYANOCOBALAMIN\DEXPANTHENOL\NIACINAMIDE\PYRIDOXINE HYDROCHLORIDE\RIBOFLAVIN 5^-PHOSPHATE SODIUM\THIAMINE HYDROCHLORIDE\VITAMIN B COMPLEX
     Dosage: 1 DF, DAILY
     Route: 048
  34. ALEVE [Concomitant]
     Active Substance: NAPROXEN SODIUM
     Dosage: UNK
     Route: 048
  35. MORPHINE [Concomitant]
     Active Substance: MORPHINE
     Dosage: 60 MG, AS NEEDED (TAKE 60 MG BY MOUTH EVERY 4 HOURS AS NEEDED)
     Route: 048
  36. AMLODIPINE [Concomitant]
     Active Substance: AMLODIPINE BESYLATE
     Dosage: 5 MG, 1X/DAY
     Route: 048
  37. METRONIDAZOLE. [Concomitant]
     Active Substance: METRONIDAZOLE
     Dosage: UNK UNK, 2X/DAY (0.75 % TOPICAL GEL)
     Route: 061

REACTIONS (3)
  - Product use issue [Unknown]
  - Malaise [Recovered/Resolved]
  - Oesophageal disorder [Unknown]

NARRATIVE: CASE EVENT DATE: 2008
